FAERS Safety Report 8479350-8 (Version None)
Quarter: 2012Q2

REPORT INFORMATION
  Report Type: 
  Country: None (occurrence: None)
  Receive Date: 20120629
  Receipt Date: 20120621
  Transmission Date: 20120825
  Serious: Yes (Other)
  Sender: FDA-Public Use
  Company Number: US-JNJFOC-20120200375

PATIENT
  Sex: Male

DRUGS (2)
  1. METHOTREXATE [Concomitant]
  2. REMICADE [Suspect]
     Indication: PRODUCT USED FOR UNKNOWN INDICATION
     Route: 042
     Dates: start: 20060601

REACTIONS (1)
  - ACTINIC KERATOSIS [None]
